FAERS Safety Report 17086840 (Version 11)
Quarter: 2021Q4

REPORT INFORMATION
  Report Type: Report from Study
  Country: BE (occurrence: BE)
  Receive Date: 20191128
  Receipt Date: 20211214
  Transmission Date: 20220303
  Serious: Yes (Hospitalization)
  Sender: FDA-Public Use
  Company Number: BE-ABBVIE-19K-013-2895575-00

PATIENT
  Age: 76 Year
  Sex: Female
  Weight: 55 kg

DRUGS (12)
  1. CARBIDOPA\LEVODOPA [Suspect]
     Active Substance: CARBIDOPA\LEVODOPA
     Indication: Parkinson^s disease
     Dosage: UNKNOWN DOSAGES
     Route: 050
     Dates: start: 20180423, end: 20180424
  2. CARBIDOPA\LEVODOPA [Suspect]
     Active Substance: CARBIDOPA\LEVODOPA
     Dosage: MD 8ML, CD 4.6ML/HR DURING 16HRS, ED 3ML
     Route: 050
     Dates: start: 20180424, end: 20180822
  3. CARBIDOPA\LEVODOPA [Suspect]
     Active Substance: CARBIDOPA\LEVODOPA
     Dosage: DOSES CONTINUOUSLY MONITORED AND ADAPTED
     Route: 050
     Dates: start: 20180822, end: 20190604
  4. CARBIDOPA\LEVODOPA [Suspect]
     Active Substance: CARBIDOPA\LEVODOPA
     Dosage: MD 7.5ML, CD 3.2ML/HR DURING 16HRS, ED 2.2ML
     Route: 050
     Dates: start: 20190604, end: 20190826
  5. CARBIDOPA\LEVODOPA [Suspect]
     Active Substance: CARBIDOPA\LEVODOPA
     Dosage: DOSES CONTINUOUSLY MONITORED AND ADAPTED
     Route: 050
     Dates: start: 20190826, end: 20190829
  6. CARBIDOPA\LEVODOPA [Suspect]
     Active Substance: CARBIDOPA\LEVODOPA
     Dosage: MD 6.5ML, CD 1.9ML/HR DURING 16HRS, ED 1.5ML
     Route: 050
     Dates: start: 20190829, end: 20190917
  7. CARBIDOPA\LEVODOPA [Suspect]
     Active Substance: CARBIDOPA\LEVODOPA
     Dosage: MD 6.5ML, CD 3.1ML/HR DURING 16HRS, ED 1.5ML
     Route: 050
     Dates: start: 20190917, end: 20191114
  8. CARBIDOPA\LEVODOPA [Suspect]
     Active Substance: CARBIDOPA\LEVODOPA
     Dosage: MD 6.5ML, CD 3.3ML/HR DURING 16HRS, ED 1.5ML
     Route: 050
     Dates: start: 20191114, end: 20191114
  9. CARBIDOPA\LEVODOPA [Suspect]
     Active Substance: CARBIDOPA\LEVODOPA
     Dosage: MD 5.5ML, CD 3.4ML/HR DURING 16HRS, ED 2.2ML
     Route: 050
     Dates: start: 20191114, end: 20191122
  10. CARBIDOPA\LEVODOPA [Suspect]
     Active Substance: CARBIDOPA\LEVODOPA
     Dosage: MD 5.5ML, CD 3.4ML/HR DURING 16HRS, ED 2.5ML
     Route: 050
     Dates: start: 20191122, end: 20191122
  11. CARBIDOPA\LEVODOPA [Suspect]
     Active Substance: CARBIDOPA\LEVODOPA
     Dosage: MD 6ML, CD 3.5ML/HR DURING 16HRS, ED 2.5ML
     Route: 050
     Dates: start: 20191122, end: 20210323
  12. CARBIDOPA\LEVODOPA [Suspect]
     Active Substance: CARBIDOPA\LEVODOPA
     Dosage: MD 6ML, CD 3.3ML/HR DURING 16HRS, ED 2.5ML
     Route: 050
     Dates: start: 20210323

REACTIONS (16)
  - Hip fracture [Recovering/Resolving]
  - Fall [Recovered/Resolved]
  - Stoma site infection [Recovered/Resolved]
  - Stoma site infection [Recovered/Resolved]
  - Reduced facial expression [Unknown]
  - Stoma site erythema [Recovered/Resolved]
  - Stoma site hypergranulation [Recovered/Resolved]
  - Stress [Recovering/Resolving]
  - On and off phenomenon [Recovering/Resolving]
  - Stoma site discharge [Recovered/Resolved]
  - Stoma site infection [Recovered/Resolved]
  - Hallucination [Unknown]
  - Confusional state [Unknown]
  - Dyskinesia [Recovering/Resolving]
  - Stoma site discharge [Recovered/Resolved]
  - Stoma site discharge [Recovered/Resolved]

NARRATIVE: CASE EVENT DATE: 20190101
